FAERS Safety Report 10311500 (Version 3)
Quarter: 2014Q3

REPORT INFORMATION
  Report Type: Spontaneous
  Country: IT (occurrence: IT)
  Receive Date: 20140717
  Receipt Date: 20140728
  Transmission Date: 20150326
  Serious: Yes (Hospitalization)
  Sender: FDA-Public Use
  Company Number: PHHY2014IT085996

PATIENT
  Sex: Female

DRUGS (4)
  1. SOLDESAM [Concomitant]
     Active Substance: DEXAMETHASONE
     Route: 042
  2. CARBOPLATIN. [Suspect]
     Active Substance: CARBOPLATIN
     Dosage: 160 MG
     Route: 042
     Dates: start: 20140625
  3. CARBOPLATIN. [Suspect]
     Active Substance: CARBOPLATIN
     Indication: OVARIAN CANCER
     Dosage: 160 MG, CYCLIC DOSE
     Route: 042
     Dates: start: 20140525
  4. ZOFRAN [Concomitant]
     Active Substance: ONDANSETRON HYDROCHLORIDE
     Indication: PREMEDICATION
     Dosage: 8 MG
     Route: 042

REACTIONS (2)
  - Hyperhidrosis [Recovered/Resolved]
  - Back pain [Recovered/Resolved]

NARRATIVE: CASE EVENT DATE: 20140529
